FAERS Safety Report 14553494 (Version 1)
Quarter: 2018Q1

REPORT INFORMATION
  Report Type: Report from Study
  Country: US (occurrence: US)
  Receive Date: 20180220
  Receipt Date: 20180220
  Transmission Date: 20180509
  Serious: Yes (Hospitalization)
  Sender: FDA-Public Use
  Company Number: US-PFIZER INC-2018036830

PATIENT
  Age: 59 Year
  Sex: Female

DRUGS (1)
  1. SUTENT [Suspect]
     Active Substance: SUNITINIB MALATE
     Indication: RENAL CELL CARCINOMA
     Dosage: 37.5 MG, CYCLIC [ONCE DAILY; FOR 2 WEEKS ON AND THEN 1 WEEK OFF]
     Route: 048
     Dates: start: 20180120, end: 20180130

REACTIONS (10)
  - Blood bilirubin increased [Unknown]
  - Stomatitis [Unknown]
  - Fatigue [Unknown]
  - Jaundice [Unknown]
  - Confusional state [Unknown]
  - Eating disorder [Unknown]
  - Hepatic enzyme increased [Unknown]
  - Ammonia increased [Unknown]
  - Swelling face [Unknown]
  - Decreased appetite [Unknown]

NARRATIVE: CASE EVENT DATE: 201801
